FAERS Safety Report 6542448-5 (Version None)
Quarter: 2010Q1

REPORT INFORMATION
  Report Type: 
  Country: None (occurrence: None)
  Receive Date: 20100119
  Receipt Date: 20100113
  Transmission Date: 20100710
  Serious: Yes (Other)
  Sender: FDA-Public Use
  Company Number: US-ELI_LILLY_AND_COMPANY-US201001002354

PATIENT
  Sex: Female
  Weight: 143 kg

DRUGS (6)
  1. BYETTA [Suspect]
     Indication: TYPE 2 DIABETES MELLITUS
     Dosage: 10 UG, 2/D
     Route: 058
     Dates: start: 20050101, end: 20090101
  2. METFORMIN HCL [Concomitant]
     Indication: TYPE 2 DIABETES MELLITUS
  3. STARLIX [Concomitant]
  4. LEVEMIR [Concomitant]
     Indication: TYPE 2 DIABETES MELLITUS
     Dosage: 80 U, EACH EVENING
     Dates: start: 20090101
  5. NOVOLOG [Concomitant]
     Indication: TYPE 2 DIABETES MELLITUS
     Dosage: 20 U, 3/D
     Dates: start: 20090101
  6. NOVOLOG [Concomitant]
     Dosage: 10 U, 3/D

REACTIONS (11)
  - BLOOD GLUCOSE DECREASED [None]
  - BLOOD GLUCOSE INCREASED [None]
  - BUNDLE BRANCH BLOCK LEFT [None]
  - CARDIAC DISORDER [None]
  - DECREASED APPETITE [None]
  - DIARRHOEA [None]
  - ELECTROCARDIOGRAM T WAVE ABNORMAL [None]
  - FEELING ABNORMAL [None]
  - OFF LABEL USE [None]
  - VOMITING [None]
  - WEIGHT INCREASED [None]
